FAERS Safety Report 6519177-7 (Version None)
Quarter: 2009Q4

REPORT INFORMATION
  Report Type: 
  Country: None (occurrence: None)
  Receive Date: 20091224
  Receipt Date: 20091224
  Transmission Date: 20100525
  Serious: Yes (Life-Threatening)
  Sender: FDA-Public Use
  Company Number: None

PATIENT
  Sex: Male
  Weight: 243 kg

DRUGS (1)
  1. CIPROFLOXACIN 500 UNKNOWN TO ME [Suspect]
     Indication: URINARY TRACT INFECTION
     Dosage: 500 BID PO
     Route: 048

REACTIONS (1)
  - HEPATITIS [None]
